FAERS Safety Report 6828243-8 (Version None)
Quarter: 2010Q3

REPORT INFORMATION
  Report Type: 
  Country: None (occurrence: None)
  Receive Date: 20100709
  Receipt Date: 20070203
  Transmission Date: 20110219
  Serious: No
  Sender: FDA-Public Use
  Company Number: US-PFIZER INC-2007009794

PATIENT
  Sex: Female
  Weight: 63.5 kg

DRUGS (7)
  1. CHANTIX [Suspect]
     Indication: SMOKING CESSATION THERAPY
     Route: 048
     Dates: start: 20061101
  2. TOPAMAX [Concomitant]
     Route: 048
  3. LAMICTAL [Concomitant]
     Route: 048
  4. KLONOPIN [Concomitant]
     Route: 048
  5. LIPITOR [Concomitant]
     Route: 048
  6. PLAVIX [Concomitant]
     Route: 048
  7. TOPROL-XL [Concomitant]
     Route: 048

REACTIONS (2)
  - BRONCHITIS [None]
  - NAUSEA [None]
